FAERS Safety Report 7572897-8 (Version None)
Quarter: 2011Q2

REPORT INFORMATION
  Report Type: 
  Country: None (occurrence: None)
  Receive Date: 20110627
  Receipt Date: 20110621
  Transmission Date: 20111010
  Serious: Yes (Other)
  Sender: FDA-Public Use
  Company Number: CA-ELI_LILLY_AND_COMPANY-CA201106006005

PATIENT
  Sex: Female
  Weight: 110 kg

DRUGS (9)
  1. ZYPREXA ZYDIS [Suspect]
     Indication: SCHIZOAFFECTIVE DISORDER
     Dosage: 5 MG, EACH EVENING
  2. BENZTROPINE MESYLATE [Concomitant]
  3. ZYPREXA ZYDIS [Suspect]
     Dosage: 25 MG, QD
  4. LOPERAMIDE [Concomitant]
  5. ZYPREXA ZYDIS [Suspect]
     Dosage: 10 MG, EACH EVENING
  6. ZYPREXA ZYDIS [Suspect]
     Dosage: 15 MG, EACH EVENING
  7. ZYPREXA ZYDIS [Suspect]
     Dosage: 20 MG, QD
  8. ZOPICLONE [Concomitant]
  9. RISPERIDONE [Concomitant]

REACTIONS (12)
  - RENAL FAILURE [None]
  - HEPATIC ENZYME INCREASED [None]
  - DIABETES MELLITUS [None]
  - HEPATIC STEATOSIS [None]
  - OVERDOSE [None]
  - MENORRHAGIA [None]
  - HAEMOGLOBIN DECREASED [None]
  - HYPERCHOLESTEROLAEMIA [None]
  - ISCHAEMIC NEPHROPATHY [None]
  - MEAN CELL VOLUME ABNORMAL [None]
  - MEAN CELL HAEMOGLOBIN DECREASED [None]
  - DIABETIC NEPHROPATHY [None]
